FAERS Safety Report 19945465 (Version 1)
Quarter: 2021Q4

REPORT INFORMATION
  Report Type: Spontaneous
  Country: JP (occurrence: JP)
  Receive Date: 20211012
  Receipt Date: 20211012
  Transmission Date: 20220303
  Serious: Yes (Hospitalization)
  Sender: FDA-Public Use
  Company Number: JP-DSJP-DSJ-2021-133318

PATIENT
  Age: 74 Year
  Sex: Female

DRUGS (7)
  1. EDOXABAN TOSYLATE [Suspect]
     Active Substance: EDOXABAN TOSYLATE
     Indication: Atrial fibrillation
     Dosage: UNK
     Route: 048
  2. AMLODIPINE BESYLATE [Concomitant]
     Active Substance: AMLODIPINE BESYLATE
     Dosage: UNK
     Route: 048
  3. ALOGLIPTIN [ALOGLIPTIN BENZOATE] [Concomitant]
     Dosage: UNK
     Route: 048
  4. BISOPROLOL FUMARATE [Concomitant]
     Active Substance: BISOPROLOL FUMARATE
     Dosage: UNK
     Route: 048
  5. CLOPIDOGREL BISULFATE [Concomitant]
     Active Substance: CLOPIDOGREL BISULFATE
     Dosage: UNK
     Route: 048
  6. PROPAFENONE [Concomitant]
     Active Substance: PROPAFENONE
     Dosage: UNK
     Route: 048
  7. BROTIZOLAM [Concomitant]
     Active Substance: BROTIZOLAM
     Dosage: UNK
     Route: 048

REACTIONS (4)
  - Tricuspid valve incompetence [Unknown]
  - Cardiac failure congestive [Recovering/Resolving]
  - Cholecystitis [Recovering/Resolving]
  - Cholangitis [Recovering/Resolving]
